FAERS Safety Report 14681455 (Version 1)
Quarter: 2018Q1

REPORT INFORMATION
  Report Type: Spontaneous
  Country: GB (occurrence: GB)
  Receive Date: 20180326
  Receipt Date: 20180326
  Transmission Date: 20180509
  Serious: Yes (Hospitalization)
  Sender: FDA-Public Use
  Company Number: GB-TEVA-2018-GB-874237

PATIENT
  Age: 61 Year
  Sex: Female

DRUGS (6)
  1. HYOSCINE BUTYLBROMIDE [Concomitant]
     Active Substance: BUTYLSCOPOLAMINE
     Route: 065
  2. MST CONTINUS [Concomitant]
     Active Substance: MORPHINE SULFATE
     Route: 048
  3. BUSCOPAN [Concomitant]
     Active Substance: BUTYLSCOPOLAMINE BROMIDE
     Dosage: 30 MILLIGRAM DAILY;
     Route: 065
  4. FUROSEMIDE. [Suspect]
     Active Substance: FUROSEMIDE
     Dosage: 40 MILLIGRAM DAILY;
  5. MORPHINE SULFATE. [Concomitant]
     Active Substance: MORPHINE SULFATE
     Dosage: 10MG/5ML 2.5-5ML TO BE TAKEN WHEN REQUIRED.
     Route: 048
  6. SANDOSTATIN [Concomitant]
     Active Substance: OCTREOTIDE ACETATE

REACTIONS (2)
  - Abdominal pain [Unknown]
  - Hypokalaemia [Unknown]
